FAERS Safety Report 22254357 (Version 1)
Quarter: 2023Q2

REPORT INFORMATION
  Report Type: Spontaneous
  Country: US (occurrence: US)
  Receive Date: 20230426
  Receipt Date: 20230426
  Transmission Date: 20230721
  Serious: Yes (Other)
  Sender: FDA-Public Use
  Company Number: US-drreddys-LIT/USA/23/0163949

PATIENT
  Age: 65 Year
  Sex: Female

DRUGS (7)
  1. CETIRIZINE [Suspect]
     Active Substance: CETIRIZINE HYDROCHLORIDE
     Indication: Rash pruritic
     Route: 048
  2. SULFASALAZINE [Suspect]
     Active Substance: SULFASALAZINE
     Indication: Spondyloarthropathy
  3. ADALIMUMAB [Suspect]
     Active Substance: ADALIMUMAB
     Indication: Spondyloarthropathy
  4. TRIAMCINOLONE [Suspect]
     Active Substance: TRIAMCINOLONE
     Indication: Rash pruritic
     Route: 061
  5. FLUOCINONIDE [Suspect]
     Active Substance: FLUOCINONIDE
     Indication: Rash pruritic
     Route: 061
  6. GABAPENTIN [Suspect]
     Active Substance: GABAPENTIN
     Indication: Rash pruritic
  7. IVERMECTIN [Suspect]
     Active Substance: IVERMECTIN
     Indication: Rash pruritic
     Dosage: 1 DOSE

REACTIONS (2)
  - Pemphigoid [Recovering/Resolving]
  - Treatment failure [Unknown]
